FAERS Safety Report 8794909 (Version 2)
Quarter: 2015Q2

REPORT INFORMATION
  Report Type: Report from Study
  Country: US (occurrence: US)
  Receive Date: 20120917
  Receipt Date: 20150624
  Transmission Date: 20150821
  Serious: Yes (Death)
  Sender: FDA-Public Use
  Company Number: US-ROCHE-1128310

PATIENT
  Sex: Female

DRUGS (2)
  1. PROCRIT [Concomitant]
     Active Substance: ERYTHROPOIETIN
  2. AVASTIN [Suspect]
     Active Substance: BEVACIZUMAB
     Indication: RENAL CANCER
     Route: 042
     Dates: start: 20050421, end: 20050630

REACTIONS (8)
  - Skin exfoliation [Unknown]
  - Arthralgia [Unknown]
  - Night sweats [Unknown]
  - Balance disorder [Unknown]
  - Dysphonia [Unknown]
  - Fatigue [Unknown]
  - Death [Fatal]
  - Disease progression [Unknown]
